FAERS Safety Report 5847445-0 (Version None)
Quarter: 2008Q3

REPORT INFORMATION
  Report Type: 
  Country: None (occurrence: None)
  Receive Date: 20080813
  Receipt Date: 20080807
  Transmission Date: 20090109
  Serious: Yes (Death, Other)
  Sender: FDA-Public Use
  Company Number: TCI2008A03975

PATIENT
  Age: 86 Year
  Sex: Male

DRUGS (6)
  1. LANSOPRAZOLE [Suspect]
     Indication: GASTRITIS
     Dosage: PER ORAL
     Route: 048
  2. LAC B (LACTOBACILLUS BIFIDUS, LYOPHILIZED) (PREPARATION FOR ORAL USE ( [Concomitant]
  3. MUCODYNE (CARBOCISTEINE) (PREPARATION FOR ORAL USE (NOS)) [Concomitant]
  4. CLARITHROMYCIN [Concomitant]
  5. SWORD (PRULIFLOXACIN) (TABLETS) [Concomitant]
  6. HOKUNALIN TAPE (TULOBUTEROL HYDROCHLORIDE) (POULTICE OR PATCH) [Concomitant]

REACTIONS (1)
  - AGRANULOCYTOSIS [None]
